FAERS Safety Report 26069787 (Version 1)
Quarter: 2025Q4

REPORT INFORMATION
  Report Type: Spontaneous
  Country: US (occurrence: US)
  Receive Date: 20251120
  Receipt Date: 20251120
  Transmission Date: 20260117
  Serious: No
  Sender: CATALYST PHARMA
  Company Number: US-CATALYST PHARMACEUTICALS-US-CATA-25-01311

PATIENT
  Sex: Male
  Weight: 55 kg

DRUGS (7)
  1. AGAMREE [Suspect]
     Active Substance: VAMOROLONE
     Indication: Duchenne muscular dystrophy
     Dosage: 6.5 ML DAILY
     Route: 048
     Dates: start: 20240809
  2. LISINOPRIL [Concomitant]
     Active Substance: LISINOPRIL
     Indication: Product used for unknown indication
     Dosage: 10 MG DAILY
     Route: 048
  3. SPIRONOLACTONE [Concomitant]
     Active Substance: SPIRONOLACTONE
     Indication: Product used for unknown indication
     Dosage: 25 MG DAILY
     Route: 048
  4. EXTRA STRENGTH TUMS [Concomitant]
     Indication: Product used for unknown indication
     Dosage: 750 MG TWICE DAILY
     Route: 048
  5. VITAMIN D3 [Concomitant]
     Active Substance: CHOLECALCIFEROL
     Indication: Product used for unknown indication
     Dosage: 2000 UNITS DAILY
     Route: 048
  6. METOPROLOL [Concomitant]
     Active Substance: METOPROLOL
     Indication: Product used for unknown indication
     Dosage: 25 MG DAILY
     Route: 048
  7. DUVYZAT [Concomitant]
     Active Substance: GIVINOSTAT
     Indication: Product used for unknown indication
     Dosage: 5 ML TWICE A DAY
     Route: 048

REACTIONS (1)
  - Swelling [Not Recovered/Not Resolved]
